FAERS Safety Report 23554974 (Version 1)
Quarter: 2024Q1

REPORT INFORMATION
  Report Type: Spontaneous
  Country: US (occurrence: None)
  Receive Date: 20240222
  Receipt Date: 20240222
  Transmission Date: 20240410
  Serious: Yes (Life-Threatening)
  Sender: FDA-Public Use
  Company Number: None

PATIENT
  Sex: Female

DRUGS (21)
  1. AIMOVIG [Suspect]
     Active Substance: ERENUMAB-AOOE
     Indication: Migraine prophylaxis
     Dosage: OTHER FREQUENCY : Q MONTHLY;?
     Route: 058
     Dates: start: 20240118, end: 20240222
  2. Zovirax 400mg PRN [Concomitant]
  3. Amitriptyline 150mg qhs [Concomitant]
  4. Atorvastatin 40mg qd [Concomitant]
  5. Vitamin D3 qd [Concomitant]
  6. Cranberry Fruit extract 2 tabs BID [Concomitant]
  7. Flexeril 10mg q8hr prn pain [Concomitant]
  8. Denta 500mg plus dental cream [Concomitant]
  9. Diclofenac 50mg tablet bid prn pain [Concomitant]
  10. benadryl 25mg bid prn [Concomitant]
  11. FLONASE [Concomitant]
     Active Substance: FLUTICASONE PROPIONATE
  12. fluticasone/salmeterol 113-14 mcg/actuation inhaler [Concomitant]
  13. ibuprofen 200mg 400 q6hr prn [Concomitant]
  14. magnesium oxide 400mg bid [Concomitant]
  15. melatonin 10mg qhs [Concomitant]
  16. lopressor 25mg tablet [Concomitant]
  17. singulair 10mg once daily [Concomitant]
  18. multivitamin once daily [Concomitant]
  19. proair hfa 90mcg/actuation 2 puffs q4hr prn [Concomitant]
  20. promethazine 25mg tablet q8hr prn nausea [Concomitant]
  21. bactroban 2% ointment [Concomitant]

REACTIONS (3)
  - Dyspnoea [None]
  - Chest pain [None]
  - Peripheral swelling [None]

NARRATIVE: CASE EVENT DATE: 20240222
